FAERS Safety Report 10692018 (Version 2)
Quarter: 2015Q1

REPORT INFORMATION
  Report Type: Spontaneous
  Country: CN (occurrence: CN)
  Receive Date: 20150106
  Receipt Date: 20150113
  Transmission Date: 20150720
  Serious: Yes (Hospitalization)
  Sender: FDA-Public Use
  Company Number: CN-NOVOPROD-433824

PATIENT
  Sex: Female

DRUGS (2)
  1. NOVOLIN 30R [Suspect]
     Active Substance: INSULIN HUMAN
     Indication: PRODUCT USED FOR UNKNOWN INDICATION
     Dosage: 25 IU, QD (15IU IN THE MORNING AND 10IU IN THE EVENING)
     Route: 065
  2. NOVOLIN 30R [Suspect]
     Active Substance: INSULIN HUMAN
     Dosage: UNKNOWN (TWICE A DAY)
     Route: 065

REACTIONS (1)
  - Breast induration [Not Recovered/Not Resolved]
